FAERS Safety Report 14647911 (Version 1)
Quarter: 2018Q1

REPORT INFORMATION
  Report Type: Spontaneous
  Country: SE (occurrence: SE)
  Receive Date: 20180316
  Receipt Date: 20180316
  Transmission Date: 20180509
  Serious: Yes (Hospitalization, Congenital Anomaly)
  Sender: FDA-Public Use
  Company Number: SE-TEVA-2018-SE-868809

PATIENT
  Sex: Female
  Weight: 110 kg

DRUGS (2)
  1. NAPROXEN. [Suspect]
     Active Substance: NAPROXEN
     Indication: BACK INJURY
  2. NAPROXEN. [Suspect]
     Active Substance: NAPROXEN
     Indication: JOINT INJURY
     Route: 065

REACTIONS (3)
  - Gastrointestinal mucosal disorder [Recovered/Resolved with Sequelae]
  - Inflammatory bowel disease [Recovered/Resolved with Sequelae]
  - Intestinal gangrene [Recovered/Resolved with Sequelae]
